FAERS Safety Report 10076770 (Version 3)
Quarter: 2014Q2

REPORT INFORMATION
  Report Type: Spontaneous
  Country: US (occurrence: US)
  Receive Date: 20140414
  Receipt Date: 20140620
  Transmission Date: 20141212
  Serious: Yes (Death)
  Sender: FDA-Public Use
  Company Number: US-PFIZER INC-2014100749

PATIENT
  Age: 4 Year
  Sex: Male

DRUGS (1)
  1. XALKORI [Suspect]
     Indication: NEUROBLASTOMA
     Dosage: 1 DF, SINGLE (ONE PILL)
     Route: 048

REACTIONS (3)
  - Disease progression [Fatal]
  - Neuroblastoma [Fatal]
  - Off label use [Unknown]
